FAERS Safety Report 20860699 (Version 1)
Quarter: 2022Q2

REPORT INFORMATION
  Report Type: Spontaneous
  Country: US (occurrence: None)
  Receive Date: 20220521
  Receipt Date: 20220521
  Transmission Date: 20220721
  Serious: Yes (Other)
  Sender: FDA-Public Use
  Company Number: None

PATIENT
  Age: 65 Year
  Sex: Male
  Weight: 70.65 kg

DRUGS (3)
  1. PAXLOVID [Suspect]
     Active Substance: NIRMATRELVIR\RITONAVIR
     Indication: COVID-19
     Dosage: OTHER QUANTITY : 3 TABLET(S);?FREQUENCY : TWICE A DAY;?
     Route: 048
     Dates: start: 20220508, end: 20220513
  2. Bystolic 5MG X 2 [Concomitant]
  3. Verapamil 120MG x1 [Concomitant]

REACTIONS (5)
  - Symptom recurrence [None]
  - Coronavirus test positive [None]
  - Rebound effect [None]
  - Symptom masked [None]
  - SARS-CoV-2 test false negative [None]

NARRATIVE: CASE EVENT DATE: 20220519
